FAERS Safety Report 19057880 (Version 1)
Quarter: 2021Q1

REPORT INFORMATION
  Report Type: Spontaneous
  Country: US (occurrence: US)
  Receive Date: 20210325
  Receipt Date: 20210325
  Transmission Date: 20210420
  Serious: Yes (Other)
  Sender: FDA-Public Use
  Company Number: None

PATIENT
  Age: 42 Year
  Sex: Female
  Weight: 93.15 kg

DRUGS (1)
  1. BAMLANIVIMAB. [Suspect]
     Active Substance: BAMLANIVIMAB
     Indication: COVID-19 PNEUMONIA
     Dosage: ?          OTHER FREQUENCY:ONCE;?
     Route: 041
     Dates: start: 20210319, end: 20210319

REACTIONS (15)
  - Hypoxia [None]
  - Rhonchi [None]
  - Fluid overload [None]
  - Orthopnoea [None]
  - Dyspnoea [None]
  - Blood pressure increased [None]
  - Pulmonary oedema [None]
  - COVID-19 [None]
  - Tachypnoea [None]
  - Pre-eclampsia [None]
  - Troponin increased [None]
  - Oxygen saturation decreased [None]
  - Peripartum cardiomyopathy [None]
  - Blood lactic acid increased [None]
  - Hypertension [None]

NARRATIVE: CASE EVENT DATE: 20210319
